FAERS Safety Report 10046226 (Version 4)
Quarter: 2014Q2

REPORT INFORMATION
  Report Type: Report from Study
  Country: GB (occurrence: GB)
  Receive Date: 20140331
  Receipt Date: 20140626
  Transmission Date: 20141212
  Serious: Yes (Hospitalization)
  Sender: FDA-Public Use
  Company Number: GB-ROCHE-1369603

PATIENT
  Age: 49 Year
  Sex: Male
  Weight: 104 kg

DRUGS (5)
  1. TOCILIZUMAB [Suspect]
     Indication: RHEUMATOID ARTHRITIS
     Route: 042
     Dates: start: 20140307, end: 20140314
  2. METHOTREXATE [Suspect]
     Indication: RHEUMATOID ARTHRITIS
     Dosage: LAST DOSE PRIOR TO SAE 08/MAR/2014
     Route: 048
     Dates: start: 20140307, end: 20140315
  3. METHOTREXATE [Suspect]
     Route: 048
     Dates: start: 20140329
  4. NAPROXEN [Concomitant]
     Route: 065
     Dates: start: 20130603
  5. OMEPRAZOLE [Concomitant]
     Route: 065
     Dates: start: 20130603

REACTIONS (3)
  - Pleural effusion [Recovered/Resolved with Sequelae]
  - Pleurisy [Unknown]
  - Lower respiratory tract infection [Unknown]
